FAERS Safety Report 14517711 (Version 3)
Quarter: 2019Q1

REPORT INFORMATION
  Report Type: Spontaneous
  Country: US (occurrence: US)
  Receive Date: 20180212
  Receipt Date: 20190222
  Transmission Date: 20190417
  Serious: Yes (Other)
  Sender: FDA-Public Use
  Company Number: US-ASTRAZENECA-2018SE16340

PATIENT
  Age: 24245 Day
  Sex: Female
  Weight: 87.5 kg

DRUGS (10)
  1. ASPIRIN. [Concomitant]
     Active Substance: ASPIRIN
     Dates: start: 2011
  2. PREVACID [Suspect]
     Active Substance: LANSOPRAZOLE
     Indication: GASTROOESOPHAGEAL REFLUX DISEASE
     Route: 048
     Dates: start: 200901, end: 201401
  3. NEXIUM [Suspect]
     Active Substance: ESOMEPRAZOLE MAGNESIUM
     Indication: GASTROOESOPHAGEAL REFLUX DISEASE
     Route: 048
     Dates: start: 200901, end: 201401
  4. VITAMIN B12 [Concomitant]
     Active Substance: CYANOCOBALAMIN
     Indication: ANAEMIA
     Dates: start: 2017
  5. FOLIC ACID. [Concomitant]
     Active Substance: FOLIC ACID
     Indication: ANAEMIA
     Dates: start: 2017
  6. NEXIUM [Suspect]
     Active Substance: ESOMEPRAZOLE MAGNESIUM
     Indication: GASTROOESOPHAGEAL REFLUX DISEASE
     Route: 048
     Dates: start: 2006
  7. VALSARTAN. [Concomitant]
     Active Substance: VALSARTAN
     Indication: BLOOD PRESSURE ABNORMAL
     Dates: start: 2011
  8. TUMS [Concomitant]
     Active Substance: CALCIUM CARBONATE
     Dosage: TWICE A DAY
     Dates: start: 2000
  9. GLUCOSAMINE [Concomitant]
     Active Substance: GLUCOSAMINE
     Dates: start: 2013
  10. PEPCID [Concomitant]
     Active Substance: FAMOTIDINE
     Dates: start: 200404

REACTIONS (2)
  - Renal injury [Unknown]
  - Chronic kidney disease [Not Recovered/Not Resolved]

NARRATIVE: CASE EVENT DATE: 20130826
